FAERS Safety Report 16790789 (Version 1)
Quarter: 2019Q3

REPORT INFORMATION
  Report Type: Spontaneous
  Country: EE (occurrence: EE)
  Receive Date: 20190910
  Receipt Date: 20190910
  Transmission Date: 20191005
  Serious: Yes (Hospitalization)
  Sender: FDA-Public Use
  Company Number: EE-MYLANLABS-2019M1083751

PATIENT
  Age: 36 Year
  Sex: Female
  Weight: 71 kg

DRUGS (3)
  1. METOPROLOL. [Concomitant]
     Active Substance: METOPROLOL
     Indication: EXTRASYSTOLES
     Dosage: 25 MILLIGRAM, QD
     Route: 048
     Dates: start: 2018
  2. TRIMETAZIDINE [Concomitant]
     Active Substance: TRIMETAZIDINE
     Indication: EXTRASYSTOLES
     Dosage: 35 MILLIGRAM, QD
     Route: 048
     Dates: start: 201901
  3. RYTMONORM 150 MG [Suspect]
     Active Substance: PROPAFENONE
     Indication: EXTRASYSTOLES
     Dosage: 150 MILLIGRAM, QD
     Route: 048
     Dates: start: 20190129, end: 20190228

REACTIONS (4)
  - Decreased appetite [Recovered/Resolved]
  - Nausea [Recovered/Resolved]
  - Headache [Recovered/Resolved]
  - Liver function test increased [Recovered/Resolved]

NARRATIVE: CASE EVENT DATE: 20190219
